FAERS Safety Report 8351685 (Version 3)
Quarter: 2014Q4

REPORT INFORMATION
  Report Type: Spontaneous
  Country: US (occurrence: US)
  Receive Date: 20120124
  Receipt Date: 20141030
  Transmission Date: 20150529
  Serious: Yes (Hospitalization, Other)
  Sender: FDA-Public Use
  Company Number: US-GLAXOSMITHKLINE-A0962499A

PATIENT
  Age: 59 Year
  Sex: Male

DRUGS (1)
  1. AVANDIA [Suspect]
     Active Substance: ROSIGLITAZONE MALEATE
     Indication: DIABETES MELLITUS
     Dosage: 8 MG, QD
     Route: 048
     Dates: start: 200105, end: 200312

REACTIONS (7)
  - Ischaemic cardiomyopathy [Unknown]
  - Catheterisation cardiac [Unknown]
  - Muscle spasms [Unknown]
  - Myocardial infarction [Not Recovered/Not Resolved]
  - Angina unstable [Unknown]
  - Coronary artery bypass [Unknown]
  - Coronary artery disease [Unknown]

NARRATIVE: CASE EVENT DATE: 20031107
